FAERS Safety Report 9745472 (Version 1)
Quarter: 2013Q4

REPORT INFORMATION
  Report Type: Spontaneous
  Country: US (occurrence: None)
  Receive Date: 20131204
  Receipt Date: 20131204
  Transmission Date: 20140711
  Serious: Yes (Other)
  Sender: FDA-Public Use
  Company Number: FK201305184

PATIENT
  Age: 3 Year
  Sex: Male

DRUGS (5)
  1. CARBOPLATIN (MANUFACTURER UNKNOWN) (CARBOPLATIN) (CARBOPLATIN) [Suspect]
     Indication: BRAIN STEM GLIOMA
     Dosage: 35 MG/M2, INTRAVENOUS
     Route: 042
  2. ETOPOSIDE [Suspect]
     Indication: BRAIN STEM GLIOMA
     Dosage: 50 MG/M2, ORAL?
     Route: 048
  3. IRINOTECAN (MANUFACTURER UNKNOWN) (IRINOTECAN) (IRINOTECAN) [Suspect]
     Indication: BRAIN STEM GLIOMA
     Dosage: 125 MG/MS, WEEKLY
  4. TEMOZOLOMIDE [Suspect]
     Indication: BRAIN STEM GLIOMA
     Dosage: 75 MG/M2, 1D, ORAL
     Route: 048
  5. BEVACIZUMAB [Suspect]
     Indication: BRAIN STEM GLIOMA

REACTIONS (6)
  - Tumour haemorrhage [None]
  - Neutropenia [None]
  - Diarrhoea [None]
  - Abdominal pain [None]
  - Dehydration [None]
  - Hypokalaemia [None]
